FAERS Safety Report 6916292-0 (Version None)
Quarter: 2010Q3

REPORT INFORMATION
  Report Type: 
  Country: None (occurrence: None)
  Receive Date: 20100810
  Receipt Date: 20100729
  Transmission Date: 20110219
  Serious: Yes (Other)
  Sender: FDA-Public Use
  Company Number: US-PFIZER INC-2007068880

PATIENT
  Sex: Female

DRUGS (4)
  1. CHANTIX [Suspect]
     Indication: SMOKING CESSATION THERAPY
     Dosage: UNK
     Dates: start: 20070701
  2. CHANTIX [Suspect]
     Dosage: UNK
     Dates: start: 20100728
  3. ADVAIR DISKUS 100/50 [Concomitant]
     Dosage: UNK
  4. CLONAZEPAM [Concomitant]
     Dosage: UNK

REACTIONS (4)
  - ASTHMA [None]
  - DRUG INEFFECTIVE [None]
  - HOT FLUSH [None]
  - NAUSEA [None]
